FAERS Safety Report 5645603-1 (Version None)
Quarter: 2008Q1

REPORT INFORMATION
  Report Type: 
  Country: None (occurrence: None)
  Receive Date: 20080229
  Receipt Date: 20080212
  Transmission Date: 20080703
  Serious: Yes (Hospitalization, Other)
  Sender: FDA-Public Use
  Company Number: IT-BAYER-200813844GPV

PATIENT
  Age: 27 Year
  Sex: Male

DRUGS (1)
  1. ULTRAVIST (PHARMACY BULK) [Suspect]
     Route: 042
     Dates: start: 20060420, end: 20060420

REACTIONS (2)
  - THROAT IRRITATION [None]
  - URTICARIA [None]
